FAERS Safety Report 25700485 (Version 6)
Quarter: 2025Q4

REPORT INFORMATION
  Report Type: Spontaneous
  Country: US (occurrence: US)
  Receive Date: 20250819
  Receipt Date: 20251030
  Transmission Date: 20260118
  Serious: No
  Sender: PFIZER
  Company Number: US-PFIZER INC-202500163032

PATIENT
  Age: 15 Year
  Sex: Male
  Weight: 49.887 kg

DRUGS (1)
  1. GENOTROPIN [Suspect]
     Active Substance: SOMATROPIN
     Dosage: 1.4 MG, DAILY
     Dates: start: 202412

REACTIONS (5)
  - Drug dose omission by device [Unknown]
  - Device use error [Unknown]
  - Poor quality device used [Unknown]
  - Device leakage [Unknown]
  - Device material issue [Unknown]

NARRATIVE: CASE EVENT DATE: 20250801
